FAERS Safety Report 9195362 (Version 1)
Quarter: 2013Q1

REPORT INFORMATION
  Report Type: Spontaneous
  Country: US (occurrence: US)
  Receive Date: 20130328
  Receipt Date: 20130328
  Transmission Date: 20140127
  Serious: No
  Sender: FDA-Public Use
  Company Number: US-ALLERGAN-1217092US

PATIENT
  Age: 68 Year
  Sex: Male

DRUGS (2)
  1. LUMIGAN? 0.01% [Suspect]
     Indication: OPEN ANGLE GLAUCOMA
     Dosage: 2 GTT, UNK
     Route: 047
  2. TIMOPTIC [Concomitant]
     Indication: OPEN ANGLE GLAUCOMA

REACTIONS (4)
  - Dermatitis [Recovered/Resolved]
  - Erythema [Recovered/Resolved]
  - Dry skin [Recovered/Resolved]
  - Pruritus [Recovered/Resolved]
